FAERS Safety Report 5333793-X (Version None)
Quarter: 2007Q1

REPORT INFORMATION
  Report Type: 
  Country: None (occurrence: None)
  Receive Date: 20070306
  Receipt Date: 20051215
  Transmission Date: 20070707
  Serious: Yes (Hospitalization)
  Sender: FDA-Public Use
  Company Number: A03200504276

PATIENT
  Age: 65 Year
  Sex: Male
  Weight: 90.7 kg

DRUGS (3)
  1. PLAVIX [Suspect]
     Indication: DEEP VEIN THROMBOSIS
     Dosage: 75 MG QD - ORAL
     Route: 048
     Dates: start: 20020101
  2. FLUOXETINE HYDROCHLORIDE [Concomitant]
  3. AMITRIPTYLINE HCL [Concomitant]

REACTIONS (2)
  - BLOOD GLUCOSE FLUCTUATION [None]
  - LOSS OF CONSCIOUSNESS [None]
